FAERS Safety Report 16966063 (Version 1)
Quarter: 2019Q4

REPORT INFORMATION
  Report Type: Report from Study
  Country: DK (occurrence: DK)
  Receive Date: 20191028
  Receipt Date: 20191028
  Transmission Date: 20200122
  Serious: Yes (Congenital Anomaly, Other)
  Sender: FDA-Public Use
  Company Number: DK-TEVA-2019-DK-1128911

PATIENT

DRUGS (1)
  1. NON-LDC PROGESTERONE [Suspect]
     Active Substance: PROGESTERONE
     Indication: PROPHYLAXIS
     Route: 064

REACTIONS (3)
  - Renal failure [Unknown]
  - Cerebral palsy [Unknown]
  - Foetal exposure during pregnancy [Unknown]
